FAERS Safety Report 25178615 (Version 1)
Quarter: 2025Q2

REPORT INFORMATION
  Report Type: Spontaneous
  Country: ES (occurrence: ES)
  Receive Date: 20250409
  Receipt Date: 20250409
  Transmission Date: 20250717
  Serious: Yes (Other)
  Sender: GLAND PHARMA
  Company Number: ES-GLANDPHARMA-ES-2025GLNLIT00913

PATIENT
  Age: 6 Month

DRUGS (1)
  1. ENOXAPARIN SODIUM [Suspect]
     Active Substance: ENOXAPARIN SODIUM
     Indication: Postoperative thrombosis
     Route: 058

REACTIONS (1)
  - Intestinal obstruction [Unknown]
